FAERS Safety Report 9178476 (Version 1)
Quarter: 2012Q4

REPORT INFORMATION
  Report Type: 
  Country: US (occurrence: US)
  Receive Date: 20121029
  Receipt Date: 20121029
  Transmission Date: 20130627
  Serious: Yes (Hospitalization, Other)
  Sender: FDA-Public Use
  Company Number: US-PFIZER INC-2012266451

PATIENT
  Sex: Female
  Weight: 77.1 kg

DRUGS (16)
  1. REVATIO [Suspect]
     Indication: PULMONARY HYPERTENSION
     Dosage: 20 mg, two or three times a day
  2. REVATIO [Suspect]
     Indication: INTERSTITIAL LUNG DISEASE
     Dosage: 20 mg, 3x/day
     Dates: end: 2009
  3. REVATIO [Suspect]
     Indication: SCLERODERMA
  4. REVATIO [Suspect]
     Indication: RAYNAUD^S DISEASE
  5. REVATIO [Suspect]
     Indication: PROMOTION OF PERIPHERAL CIRCULATION
  6. PREDNISONE [Suspect]
     Indication: CARDIAC DISORDER PROPHYLAXIS
     Dosage: 5 mg, Daily
     Dates: start: 2000
  7. PREDNISONE [Suspect]
     Indication: LUNG DISORDER
     Dosage: 120 mg, every 8 hours
     Dates: start: 2009
  8. PREDNISONE [Suspect]
     Dosage: 60 mg, Daily
  9. PREDNISONE [Suspect]
     Dosage: 10 mg, Daily
  10. PREDNISONE [Suspect]
     Dosage: UNK, Daily
  11. AMBRISENTAN [Concomitant]
     Indication: PULMONARY HYPERTENSION
     Dosage: 10 mg, daily
     Dates: start: 2009
  12. AMBRISENTAN [Concomitant]
     Indication: SCLERODERMA
  13. AMBRISENTAN [Concomitant]
     Indication: RAYNAUD^S DISEASE
  14. CYTOXAN [Concomitant]
     Indication: PULMONARY HYPERTENSION
     Dosage: UNK
     Dates: start: 2009, end: 2011
  15. CYTOXAN [Concomitant]
     Indication: SCLERODERMA
  16. CYTOXAN [Concomitant]
     Indication: RAYNAUD^S DISEASE

REACTIONS (3)
  - Cardiopulmonary failure [Recovered/Resolved]
  - Diabetes mellitus [Unknown]
  - Off label use [Unknown]
